FAERS Safety Report 7323636-7 (Version None)
Quarter: 2011Q1

REPORT INFORMATION
  Report Type: 
  Country: None (occurrence: None)
  Receive Date: 20110301
  Receipt Date: 20110221
  Transmission Date: 20110831
  Serious: Yes (Other)
  Sender: FDA-Public Use
  Company Number: DE-ROCHE-762399

PATIENT
  Age: 51 Year
  Sex: Female

DRUGS (3)
  1. LAMOTRIGINE [Concomitant]
  2. VALPROINSAURE [Concomitant]
  3. CLONAZEPAM [Suspect]
     Dosage: INTAKE FOR YEARS
     Route: 065

REACTIONS (1)
  - GASTRITIS [None]
